FAERS Safety Report 13778395 (Version 1)
Quarter: 2017Q3

REPORT INFORMATION
  Report Type: Spontaneous
  Country: US (occurrence: US)
  Receive Date: 20170721
  Receipt Date: 20170721
  Transmission Date: 20171127
  Serious: No
  Sender: FDA-Public Use
  Company Number: US-TEVA-679087USA

PATIENT
  Sex: Female

DRUGS (1)
  1. DIVALPROEX [Suspect]
     Active Substance: DIVALPROEX SODIUM

REACTIONS (4)
  - Depression [Unknown]
  - Disturbance in attention [Unknown]
  - Anxiety [Unknown]
  - Drug ineffective [Unknown]
